FAERS Safety Report 11216718 (Version 2)
Quarter: 2015Q4

REPORT INFORMATION
  Report Type: Report from Study
  Country: US (occurrence: US)
  Receive Date: 20150624
  Receipt Date: 20151130
  Transmission Date: 20160304
  Serious: Yes (Other)
  Sender: FDA-Public Use
  Company Number: US-BAYER-2015-185375

PATIENT
  Age: 65 Year
  Sex: Male

DRUGS (3)
  1. STIVARGA [Suspect]
     Active Substance: REGORAFENIB
     Indication: COLON CANCER METASTATIC
     Dosage: 160 MG, DAILY DOSE
     Route: 048
     Dates: start: 20150423
  2. STIVARGA [Suspect]
     Active Substance: REGORAFENIB
     Indication: COLON CANCER METASTATIC
     Dosage: 4 TABLETS BY MOUTH EVERY MORNING FOR 21 DAYS, 7 DAYS OFF
     Route: 048
     Dates: start: 20150806, end: 20151117
  3. STIVARGA [Suspect]
     Active Substance: REGORAFENIB
     Indication: LUNG NEOPLASM MALIGNANT
     Dosage: 120 MG, QD
     Route: 048
     Dates: start: 2015

REACTIONS (11)
  - Decreased appetite [Not Recovered/Not Resolved]
  - Diarrhoea [None]
  - Constipation [None]
  - Reproductive tract disorder [Not Recovered/Not Resolved]
  - Weight decreased [None]
  - Nausea [Not Recovered/Not Resolved]
  - Fatigue [Not Recovered/Not Resolved]
  - Aphonia [Not Recovered/Not Resolved]
  - Poor quality sleep [None]
  - Pain in extremity [None]
  - Chromaturia [None]

NARRATIVE: CASE EVENT DATE: 201504
